FAERS Safety Report 8035985-8 (Version None)
Quarter: 2012Q1

REPORT INFORMATION
  Report Type: 
  Country: None (occurrence: None)
  Receive Date: 20120106
  Receipt Date: 20111229
  Transmission Date: 20120608
  Serious: Yes (Other)
  Sender: FDA-Public Use
  Company Number: AUR-APL-2011-06173

PATIENT
  Age: 84 Year
  Sex: Female
  Weight: 56.6996 kg

DRUGS (1)
  1. ALENDRONIC ACID (ALENDRONATE ACID) [Suspect]
     Indication: OSTEOPOROSIS
     Dosage: (70 MG, EVERY THURSDAY), ORAL
     Route: 048

REACTIONS (2)
  - ARTHRALGIA [None]
  - GAIT DISTURBANCE [None]
